FAERS Safety Report 19120280 (Version 1)
Quarter: 2021Q2

REPORT INFORMATION
  Report Type: Other
  Country: IN (occurrence: IN)
  Receive Date: 20210412
  Receipt Date: 20210412
  Transmission Date: 20210717
  Serious: Yes (Hospitalization)
  Sender: FDA-Public Use
  Company Number: IN-NUVO PHARMACEUTICALS INC-2109183

PATIENT
  Age: 58 Year
  Sex: Male

DRUGS (1)
  1. NAPROXEN. [Suspect]
     Active Substance: NAPROXEN
     Indication: SPINAL PAIN
     Route: 065

REACTIONS (1)
  - Psoriasis [Recovering/Resolving]
